FAERS Safety Report 17886145 (Version 1)
Quarter: 2020Q2

REPORT INFORMATION
  Report Type: Report from Study
  Country: US (occurrence: US)
  Receive Date: 20200611
  Receipt Date: 20200611
  Transmission Date: 20200714
  Serious: Yes (Death, Other)
  Sender: FDA-Public Use
  Company Number: US-BAUSCH-BL-2020-016855

PATIENT
  Age: 52 Year
  Sex: Female

DRUGS (2)
  1. XIFAXAN [Suspect]
     Active Substance: RIFAXIMIN
     Indication: HEPATIC CIRRHOSIS
     Dosage: STARTED XIFAXAN AT THE END OF 2019
     Route: 048
     Dates: start: 2019
  2. XIFAXAN [Suspect]
     Active Substance: RIFAXIMIN
     Dosage: SHE LATER WAS ABLE TO RESTART AFTER APPLYING FOR THE BAUSCH PAP.
     Route: 048

REACTIONS (4)
  - Insurance issue [Unknown]
  - Therapy interrupted [Unknown]
  - Death [Fatal]
  - Colon operation [Unknown]

NARRATIVE: CASE EVENT DATE: 2020
